FAERS Safety Report 7840345 (Version 18)
Quarter: 2013Q2

REPORT INFORMATION
  Report Type: Spontaneous
  Country: US (occurrence: US)
  Receive Date: 20110304
  Receipt Date: 20130508
  Transmission Date: 20140414
  Serious: No
  Sender: FDA-Public Use
  Company Number: US-BIOGENIDEC-2011BI007363

PATIENT
  Age: 37 Year
  Sex: Female

DRUGS (6)
  1. TYSABRI [Suspect]
     Indication: MULTIPLE SCLEROSIS
     Route: 042
     Dates: start: 20081006, end: 20090429
  2. TYSABRI [Suspect]
     Indication: MULTIPLE SCLEROSIS
     Route: 042
     Dates: start: 20110404
  3. SOLU-MEDROL [Concomitant]
     Indication: MULTIPLE SCLEROSIS
     Route: 042
     Dates: start: 2002, end: 2011
  4. MS CONTIN [Concomitant]
     Indication: PAIN
  5. OXYCODONE [Concomitant]
     Indication: PAIN
  6. STEROIDS (NOS) [Concomitant]
     Indication: MUSCLE SPASMS

REACTIONS (22)
  - Muscle tightness [Recovered/Resolved]
  - Feeling hot [Recovered/Resolved]
  - Band sensation [Recovered/Resolved]
  - Dysuria [Recovered/Resolved]
  - Migraine [Recovered/Resolved]
  - Sensation of foreign body [Not Recovered/Not Resolved]
  - Throat tightness [Not Recovered/Not Resolved]
  - Diarrhoea [Not Recovered/Not Resolved]
  - Weight decreased [Unknown]
  - Syncope [Recovered/Resolved]
  - Dehydration [Recovered/Resolved]
  - Blood test abnormal [Unknown]
  - Muscle spasms [Recovered/Resolved]
  - Dizziness [Recovered/Resolved]
  - Urinary tract infection [Not Recovered/Not Resolved]
  - Headache [Recovered/Resolved]
  - Vomiting [Recovered/Resolved]
  - Asthenia [Recovered/Resolved]
  - Multiple sclerosis [Unknown]
  - Fatigue [Not Recovered/Not Resolved]
  - Nausea [Recovered/Resolved]
  - Multiple sclerosis relapse [Recovered/Resolved]
